FAERS Safety Report 20814430 (Version 1)
Quarter: 2022Q2

REPORT INFORMATION
  Report Type: Spontaneous
  Country: IT (occurrence: IT)
  Receive Date: 20220511
  Receipt Date: 20220511
  Transmission Date: 20220720
  Serious: Yes (Other)
  Sender: FDA-Public Use
  Company Number: None

PATIENT
  Age: 67 Year
  Sex: Male
  Weight: 70 kg

DRUGS (3)
  1. LENVIMA [Suspect]
     Active Substance: LENVATINIB
     Indication: Poorly differentiated thyroid carcinoma
     Route: 048
     Dates: start: 20151218, end: 20220314
  2. PERINDOPRIL TEVA [Concomitant]
     Indication: Poorly differentiated thyroid carcinoma
     Dosage: FREQUENCY UNKNOWN
     Route: 048
     Dates: start: 20180611, end: 20220414
  3. EDOXABAN TOSYLATE [Concomitant]
     Active Substance: EDOXABAN TOSYLATE
     Indication: Poorly differentiated thyroid carcinoma
     Dosage: FREQUENCY UNKNOWN
     Route: 048
     Dates: start: 20210407, end: 20220414

REACTIONS (3)
  - Atrial fibrillation [Unknown]
  - Chordae tendinae rupture [Unknown]
  - Mitral valve incompetence [Unknown]

NARRATIVE: CASE EVENT DATE: 20220314
